FAERS Safety Report 24748131 (Version 1)
Quarter: 2024Q4

REPORT INFORMATION
  Report Type: Spontaneous
  Country: US (occurrence: None)
  Receive Date: 20241217
  Receipt Date: 20241217
  Transmission Date: 20250115
  Serious: Yes (Disabling)
  Sender: Public
  Company Number: None

PATIENT
  Age: 28 Year
  Sex: Male
  Weight: 72 kg

DRUGS (2)
  1. PAROXETINE [Suspect]
     Active Substance: PAROXETINE
     Indication: Depression
     Dosage: OTHER QUANTITY : 1 TABLET(S);?FREQUENCY : DAILY;?
     Route: 048
  2. PAROXETINE [Suspect]
     Active Substance: PAROXETINE
     Indication: Anxiety

REACTIONS (8)
  - Genital hypoaesthesia [None]
  - Anorgasmia [None]
  - Cognitive disorder [None]
  - Fatigue [None]
  - Autoimmune disorder [None]
  - Dysuria [None]
  - Neuropathy peripheral [None]
  - Nerve injury [None]

NARRATIVE: CASE EVENT DATE: 20180404
